FAERS Safety Report 9318008 (Version 1)
Quarter: 2013Q1

REPORT INFORMATION
  Report Type: Spontaneous
  Country: US (occurrence: None)
  Receive Date: 20121207
  Receipt Date: 20121207
  Transmission Date: 20140127
  Serious: Yes (Other)
  Sender: FDA-Public Use
  Company Number: ACO_32642_2012

PATIENT
  Age: 59 Year
  Sex: Female
  Weight: 67.1 kg

DRUGS (18)
  1. AMPYRA (DALFAMPRIDINE) TABLET, 10MG [Suspect]
     Indication: GAIT DISTURBANCE
     Route: 048
     Dates: end: 201110
  2. FOSAMAX (ALENDRONATE SODIUM) [Concomitant]
  3. GABAPENTIN (GABAPENTIN) [Concomitant]
  4. XANAX (ALPRAZOLAM) [Concomitant]
  5. IBUPROFEN (IBUPROFEN) [Concomitant]
  6. NORCO (HYDROCODONE BITARTRATE, PARACETAMOL) [Concomitant]
  7. ESTRADIOL (ESTRADIOL VALERATE) [Concomitant]
  8. AMBIEN (ZOLPIDEM TARTRATE) [Concomitant]
  9. TOPAMAX (TOPIRAMATE) [Concomitant]
  10. SINGULAIR [Concomitant]
  11. BETASERON (ALBUMIN HUMAN, GLUCOSE, INTERFERON BETA) [Concomitant]
  12. PRILOSEC (OMEPRAZOLE MAGNESIUM) [Concomitant]
  13. LORATIDINE [Concomitant]
  14. IMITREX (SUMATRIPTAN) [Concomitant]
  15. VITAMIN C [Concomitant]
  16. VITAMIN E (TOCOPHERYL ACETATE) [Concomitant]
  17. VITAMIN D3 (COLECALCIFEROL) [Concomitant]
  18. CALCIUM (CALCIUM) [Concomitant]

REACTIONS (5)
  - Renal impairment [None]
  - Muscle tightness [None]
  - Gait disturbance [None]
  - Fall [None]
  - Paraesthesia [None]
